FAERS Safety Report 9186001 (Version 1)
Quarter: 2013Q1

REPORT INFORMATION
  Report Type: Spontaneous
  Country: US (occurrence: US)
  Receive Date: 20130325
  Receipt Date: 20130325
  Transmission Date: 20140127
  Serious: No
  Sender: FDA-Public Use
  Company Number: US-ASTRAZENECA-2012SE20031

PATIENT
  Age: 65 Year
  Sex: Female

DRUGS (8)
  1. ATENOLOL [Suspect]
     Route: 048
  2. NEXIUM [Suspect]
     Route: 048
  3. ZESTRIL [Suspect]
     Route: 048
  4. PRAVASTATIN SODIUM [Concomitant]
  5. HYDROCHLOROTHIAZIDE [Concomitant]
  6. LEXAPRO [Concomitant]
  7. POTASSIUM CHLORIDE [Concomitant]
  8. ASPIRIN [Concomitant]

REACTIONS (16)
  - Anxiety [Unknown]
  - Haemorrhoids [Unknown]
  - Obesity [Unknown]
  - Essential hypertension [Unknown]
  - Hyperlipidaemia [Unknown]
  - Pain [Unknown]
  - Cough [Unknown]
  - Rhinitis allergic [Unknown]
  - Gastrooesophageal reflux disease [Unknown]
  - Gastrooesophageal reflux disease [Unknown]
  - Eructation [Unknown]
  - Hiatus hernia [Unknown]
  - Malaise [Unknown]
  - Drug hypersensitivity [Unknown]
  - Nausea [Unknown]
  - Drug dose omission [Unknown]
